FAERS Safety Report 7954770-6 (Version None)
Quarter: 2011Q4

REPORT INFORMATION
  Report Type: 
  Country: None (occurrence: None)
  Receive Date: 20111202
  Receipt Date: 20111005
  Transmission Date: 20120403
  Serious: Yes (Death, Hospitalization, Other)
  Sender: FDA-Public Use
  Company Number: GB-BAYER-2011-085144

PATIENT
  Age: 24 Year
  Sex: Male

DRUGS (5)
  1. IBUPROFEN [Suspect]
     Dosage: PRIOR TO ADMISSION
  2. FERROUS GLUCONATE [Suspect]
  3. KETAMINE HCL [Suspect]
     Indication: HEPATIC NECROSIS
  4. ACETAMINOPHEN [Suspect]
     Dosage: 100 TABLETS OF 50 G 24 HOURS PRIOR TO ADMISSION
  5. ACETYLSALICYLIC ACID SRT [Suspect]
     Dosage: PRIOR TO ADMISSION

REACTIONS (6)
  - ACUTE HEPATIC FAILURE [None]
  - HEPATIC NECROSIS [None]
  - SEPTIC EMBOLUS [None]
  - ASPERGILLOSIS [None]
  - BRAIN STEM SYNDROME [None]
  - NEUROLOGICAL SYMPTOM [None]
